FAERS Safety Report 9932957 (Version 1)
Quarter: 2014Q1

REPORT INFORMATION
  Report Type: Spontaneous
  Country: US (occurrence: US)
  Receive Date: 20140228
  Receipt Date: 20140228
  Transmission Date: 20141002
  Serious: No
  Sender: FDA-Public Use
  Company Number: US-GLAXOSMITHKLINE-A1041738A

PATIENT
  Age: 55 Year
  Sex: Female

DRUGS (6)
  1. LAMICTAL [Suspect]
     Indication: CONVULSION
     Dosage: 200MG TWICE PER DAY
     Route: 048
  2. TOPAMAX [Concomitant]
  3. HYDROCHLOROTHIAZIDE [Concomitant]
  4. CARVEDILOL [Concomitant]
  5. PRAVASTATIN [Concomitant]
  6. CITALOPRAM [Concomitant]

REACTIONS (2)
  - Blood pressure increased [Not Recovered/Not Resolved]
  - Underdose [Not Recovered/Not Resolved]
